FAERS Safety Report 18312708 (Version 1)
Quarter: 2020Q3

REPORT INFORMATION
  Report Type: Spontaneous
  Country: US (occurrence: US)
  Receive Date: 20200925
  Receipt Date: 20200925
  Transmission Date: 20201103
  Serious: No
  Sender: FDA-Public Use
  Company Number: None

PATIENT
  Age: 76 Year
  Sex: Female
  Weight: 49.7 kg

DRUGS (9)
  1. ANASTROZOLE. [Concomitant]
     Active Substance: ANASTROZOLE
  2. FOLIC ACID. [Concomitant]
     Active Substance: FOLIC ACID
  3. MIRTAZAPINE. [Concomitant]
     Active Substance: MIRTAZAPINE
  4. BISACODYL. [Concomitant]
     Active Substance: BISACODYL
  5. CAPECITABINE. [Suspect]
     Active Substance: CAPECITABINE
     Indication: OVARIAN CANCER
     Route: 048
     Dates: start: 20200817, end: 20200925
  6. KEPPRA [Concomitant]
     Active Substance: LEVETIRACETAM
  7. NORCO [Concomitant]
     Active Substance: ACETAMINOPHEN\HYDROCODONE BITARTRATE
  8. DOCUSATE SODIUM. [Concomitant]
     Active Substance: DOCUSATE SODIUM
  9. DILANTIN [Concomitant]
     Active Substance: PHENYTOIN

REACTIONS (1)
  - Disease progression [None]

NARRATIVE: CASE EVENT DATE: 20200925
